FAERS Safety Report 8768879 (Version 1)
Quarter: 2012Q4

REPORT INFORMATION
  Report Type: 
  Country: US (occurrence: US)
  Receive Date: 20120904
  Receipt Date: 20120904
  Transmission Date: 20130627
  Serious: No
  Sender: FDA-Public Use
  Company Number: US-AMGEN-USASP2012029367

PATIENT
  Age: 53 Year
  Sex: Male
  Weight: 83.9 kg

DRUGS (4)
  1. ENBREL [Suspect]
     Indication: RHEUMATOID ARTHRITIS
     Dosage: 50 mg, qwk
     Dates: start: 20120501
  2. METHOTREXATE [Concomitant]
     Dosage: 1 mg, UNK
  3. PRILOSEC                           /00661201/ [Concomitant]
     Dosage: 1 mg, UNK
  4. MULTIVITAMINS, PLAIN [Concomitant]
     Dosage: 1 UNK, UNK

REACTIONS (5)
  - Pain [Not Recovered/Not Resolved]
  - Headache [Not Recovered/Not Resolved]
  - Pyrexia [Not Recovered/Not Resolved]
  - Injection site pruritus [Unknown]
  - Coccidioidomycosis [Unknown]
